FAERS Safety Report 5529249-1 (Version None)
Quarter: 2007Q4

REPORT INFORMATION
  Report Type: 
  Country: None (occurrence: None)
  Receive Date: 20071129
  Receipt Date: 20071001
  Transmission Date: 20080405
  Serious: No
  Sender: FDA-Public Use
  Company Number: A0673149A

PATIENT
  Age: 53 Year
  Sex: Female

DRUGS (2)
  1. BUPROPION HCL [Suspect]
     Route: 048
  2. LITHIUM CARBONATE [Concomitant]

REACTIONS (5)
  - EYE SWELLING [None]
  - FATIGUE [None]
  - HEADACHE [None]
  - NAUSEA [None]
  - PHARMACEUTICAL PRODUCT COMPLAINT [None]
